FAERS Safety Report 8995030 (Version 4)
Quarter: 2014Q2

REPORT INFORMATION
  Report Type: Report from Study
  Country: IE (occurrence: IE)
  Receive Date: 20130102
  Receipt Date: 20140417
  Transmission Date: 20141212
  Serious: Yes (Hospitalization, Other)
  Sender: FDA-Public Use
  Company Number: IE-ROCHE-1174302

PATIENT
  Age: 86 Year
  Sex: Female

DRUGS (7)
  1. RANIBIZUMAB [Suspect]
     Indication: AGE-RELATED MACULAR DEGENERATION
     Dosage: LAST DOSE PRIOR TO SAE: 16/OCT/2012?LEFT EYE
     Route: 065
     Dates: start: 20110510, end: 20130702
  2. RANIBIZUMAB [Suspect]
     Route: 065
     Dates: start: 20130604
  3. RANIBIZUMAB [Suspect]
     Dosage: RIGHT EYE
     Route: 050
     Dates: start: 20121016
  4. RANIBIZUMAB [Suspect]
     Route: 065
     Dates: start: 20121113
  5. RANIBIZUMAB [Suspect]
     Dosage: LEFT EYE
     Route: 050
     Dates: start: 20130406, end: 20130406
  6. RANIBIZUMAB [Suspect]
     Route: 050
     Dates: start: 20130207, end: 20130207
  7. RANIBIZUMAB [Suspect]
     Dosage: RIGHT EYE
     Route: 050
     Dates: start: 20130208, end: 20130208

REACTIONS (2)
  - Localised infection [Recovered/Resolved]
  - Kidney infection [Recovered/Resolved]
